FAERS Safety Report 17355923 (Version 2)
Quarter: 2020Q2

REPORT INFORMATION
  Report Type: Spontaneous
  Country: US (occurrence: US)
  Receive Date: 20200131
  Receipt Date: 20200507
  Transmission Date: 20200713
  Serious: No
  Sender: FDA-Public Use
  Company Number: US-SA-2020SA022161

PATIENT
  Age: 65 Year
  Sex: Male

DRUGS (1)
  1. DUPIXENT [Suspect]
     Active Substance: DUPILUMAB
     Indication: DERMATITIS ATOPIC
     Dosage: 300 MG, OTHER
     Route: 058
     Dates: start: 201910

REACTIONS (7)
  - Pain [Unknown]
  - Pruritus [Unknown]
  - Injection site pain [Unknown]
  - Insomnia [Unknown]
  - Rash [Unknown]
  - Skin discolouration [Unknown]
  - Injection site erythema [Unknown]
